FAERS Safety Report 26119319 (Version 2)
Quarter: 2025Q4

REPORT INFORMATION
  Report Type: Spontaneous
  Country: CA (occurrence: CA)
  Receive Date: 20251204
  Receipt Date: 20251212
  Transmission Date: 20260117
  Serious: Yes (Hospitalization, Other)
  Sender: Kenvue
  Company Number: CA-KENVUE-20251109764

PATIENT
  Age: 60 Year

DRUGS (68)
  1. TYLENOL [Suspect]
     Active Substance: ACETAMINOPHEN
     Indication: Product used for unknown indication
     Dosage: UNK
     Route: 065
  2. CODEINE [Suspect]
     Active Substance: CODEINE
     Indication: Oral pain
     Route: 065
  3. REPLAGAL [Suspect]
     Active Substance: AGALSIDASE ALFA
     Indication: Fabry^s disease
     Dosage: 4 DOSAGE FORM, 1 EVERY 2 WEEKS
     Route: 050
  4. REPLAGAL [Suspect]
     Active Substance: AGALSIDASE ALFA
     Dosage: UNK, 1 EVERY 2 WEEKS
  5. REPLAGAL [Suspect]
     Active Substance: AGALSIDASE ALFA
     Dosage: 4 DOSAGE FORM, 1 EVERY 2 WEEKS
     Route: 050
  6. REPLAGAL [Suspect]
     Active Substance: AGALSIDASE ALFA
     Dosage: 15.8 MILLIGRAM, 1 EVERY 2 WEEKS
     Route: 050
  7. REPLAGAL [Suspect]
     Active Substance: AGALSIDASE ALFA
     Dosage: 15.8 MILLIGRAM, 1 EVERY 2 WEEKS
  8. REPLAGAL [Suspect]
     Active Substance: AGALSIDASE ALFA
     Dosage: 15.8 MILLIGRAM, 1 EVERY 2 WEEKS
     Route: 050
  9. REPLAGAL [Suspect]
     Active Substance: AGALSIDASE ALFA
     Dosage: 4 DOSAGE FORM, 1 EVERY 2 WEEKS
     Route: 050
  10. REPLAGAL [Suspect]
     Active Substance: AGALSIDASE ALFA
     Dosage: 4 DOSAGE FORM, 1 EVERY 2 WEEKS
     Route: 050
  11. REPLAGAL [Suspect]
     Active Substance: AGALSIDASE ALFA
     Dosage: 4 DOSAGE FORM, 1 EVERY 2 WEEKS
     Route: 050
  12. REPLAGAL [Suspect]
     Active Substance: AGALSIDASE ALFA
     Dosage: 4 DOSAGE FORM, 1 EVERY 2 WEEKS
     Route: 050
  13. REPLAGAL [Suspect]
     Active Substance: AGALSIDASE ALFA
     Dosage: 4 DOSAGE FORM, 1 EVERY 2 WEEKS
  14. REPLAGAL [Suspect]
     Active Substance: AGALSIDASE ALFA
     Dosage: 4 DOSAGE FORM, 1 EVERY 2 WEEKS
     Route: 050
  15. REPLAGAL [Suspect]
     Active Substance: AGALSIDASE ALFA
     Dosage: 4 DOSAGE FORM, 1 EVERY 2 WEEKS
     Route: 050
  16. REPLAGAL [Suspect]
     Active Substance: AGALSIDASE ALFA
     Dosage: 4 DOSAGE FORM, 1 EVERY 2 WEEKS
     Route: 050
  17. REPLAGAL [Suspect]
     Active Substance: AGALSIDASE ALFA
     Dosage: 5 DOSAGE FORM, 1 EVERY 2 WEEKS
     Route: 050
  18. REPLAGAL [Suspect]
     Active Substance: AGALSIDASE ALFA
     Dosage: UNK, 1 EVERY 2 WEEKS
  19. REPLAGAL [Suspect]
     Active Substance: AGALSIDASE ALFA
     Dosage: 5 DOSAGE FORM, 1 EVERY 2 WEEKS
     Route: 050
  20. REPLAGAL [Suspect]
     Active Substance: AGALSIDASE ALFA
     Dosage: 5 DOSAGE FORM, 1 EVERY 2 WEEKS
     Route: 050
  21. REPLAGAL [Suspect]
     Active Substance: AGALSIDASE ALFA
     Dosage: 5 DOSAGE FORM, 1 EVERY 2 WEEKS
     Route: 050
  22. REPLAGAL [Suspect]
     Active Substance: AGALSIDASE ALFA
     Dosage: UNK, 1 EVERY 2 WEEKS
  23. REPLAGAL [Suspect]
     Active Substance: AGALSIDASE ALFA
     Dosage: UNK, 1 EVERY 2 WEEKS
  24. REPLAGAL [Suspect]
     Active Substance: AGALSIDASE ALFA
     Dosage: UNK, 1 EVERY 2 WEEKS
  25. REPLAGAL [Suspect]
     Active Substance: AGALSIDASE ALFA
     Dosage: UNK, 1 EVERY 2 WEEKS
     Route: 050
  26. REPLAGAL [Suspect]
     Active Substance: AGALSIDASE ALFA
     Dosage: UNK, 1 EVERY 2 WEEKS
     Route: 050
  27. REPLAGAL [Suspect]
     Active Substance: AGALSIDASE ALFA
     Dosage: UNK, 1 EVERY 2 WEEKS
     Route: 050
  28. REPLAGAL [Suspect]
     Active Substance: AGALSIDASE ALFA
     Dosage: UNK, 1 EVERY 2 WEEKS
     Route: 050
  29. REPLAGAL [Suspect]
     Active Substance: AGALSIDASE ALFA
     Dosage: UNK, 1 EVERY 2 WEEKS
     Route: 050
  30. REPLAGAL [Suspect]
     Active Substance: AGALSIDASE ALFA
     Dosage: UNK, 1 EVERY 2 WEEKS
     Route: 050
  31. REPLAGAL [Suspect]
     Active Substance: AGALSIDASE ALFA
     Dosage: UNK, 1 EVERY 2 WEEKS
     Route: 050
  32. REPLAGAL [Suspect]
     Active Substance: AGALSIDASE ALFA
     Dosage: 17.84 MILLIGRAM, 1 EVERY 2 WEEKS
     Route: 050
  33. REPLAGAL [Suspect]
     Active Substance: AGALSIDASE ALFA
     Dosage: UNK, 2 EVERY 1 WEEKS
  34. REPLAGAL [Suspect]
     Active Substance: AGALSIDASE ALFA
     Dosage: 17.84 MILLIGRAM, 1 EVERY 2 WEEKS
     Route: 050
  35. REPLAGAL [Suspect]
     Active Substance: AGALSIDASE ALFA
     Dosage: UNK, 1 EVERY 2 WEEKS
  36. REPLAGAL [Suspect]
     Active Substance: AGALSIDASE ALFA
     Dosage: 17.84 MILLIGRAM, 1 EVERY 2 WEEKS
     Route: 050
  37. REPLAGAL [Suspect]
     Active Substance: AGALSIDASE ALFA
     Dosage: 17.84 MILLIGRAM, 1 EVERY 2 WEEKS
     Route: 050
  38. REPLAGAL [Suspect]
     Active Substance: AGALSIDASE ALFA
     Dosage: 17.84 MILLIGRAM, 1 EVERY 2 WEEKS
     Route: 065
  39. REPLAGAL [Suspect]
     Active Substance: AGALSIDASE ALFA
     Indication: Fabry^s disease
     Dosage: 4 DOSAGE FORM, 1 EVERY 2 WEEKS
     Route: 050
  40. LISINOPRIL [Suspect]
     Active Substance: LISINOPRIL
     Indication: Product used for unknown indication
     Dosage: 5 MILLIGRAM, ONCE A DAY ( 1 EVERY 1 DAYS)
  41. LISINOPRIL [Suspect]
     Active Substance: LISINOPRIL
     Dosage: 10 MILLIGRAM, ONCE A DAY ( 1 EVERY 1 DAYS)
  42. LISINOPRIL [Suspect]
     Active Substance: LISINOPRIL
     Dosage: 5 MILLIGRAM, ONCE A DAY ( 1 EVERY 1 DAYS)
  43. LISINOPRIL [Suspect]
     Active Substance: LISINOPRIL
     Indication: Product used for unknown indication
     Dosage: 5 MILLIGRAM
     Route: 065
  44. TYLENOL ARTHRITIS PAIN [Concomitant]
     Active Substance: ACETAMINOPHEN
     Indication: Product used for unknown indication
  45. VITAMIN D [Concomitant]
     Active Substance: VITAMIN D NOS
     Indication: Product used for unknown indication
     Dosage: 1000.0 IU (INTERNATIONAL UNIT), TWICE A DAY (2 EVERY 1 DAYS)
  46. ASPIRIN [Concomitant]
     Active Substance: ASPIRIN
     Indication: Product used for unknown indication
     Dosage: 81 MILLIGRAM
  47. BUDESONIDE [Concomitant]
     Active Substance: BUDESONIDE
     Indication: Product used for unknown indication
     Dosage: 64 MILLIGRAM INTRA-NASAL
  48. CANDESARTAN [Concomitant]
     Active Substance: CANDESARTAN
     Indication: Product used for unknown indication
     Route: 065
  49. CLOPIDOGREL [Concomitant]
     Active Substance: CLOPIDOGREL BISULFATE
     Indication: Product used for unknown indication
     Route: 065
  50. CLOPIDOGREL BISULFATE [Concomitant]
     Active Substance: CLOPIDOGREL BISULFATE
     Indication: Product used for unknown indication
     Dosage: 75 MILLIGRAM, ONCE A DAY (1 EVERY 1 DAY)
  51. DEMEROL [Concomitant]
     Active Substance: MEPERIDINE HYDROCHLORIDE
     Indication: Product used for unknown indication
     Route: 065
  52. DICLOFENAC SODIUM [Concomitant]
     Active Substance: DICLOFENAC SODIUM
     Indication: Product used for unknown indication
     Dosage: UNK UNK, TWICE A DAY
     Route: 065
  53. DOXYCYCLINE HYCLATE [Concomitant]
     Active Substance: DOXYCYCLINE HYCLATE
     Indication: Product used for unknown indication
     Dosage: 100 MILLIGRAM
     Route: 065
  54. FERROUS FUMARATE [Concomitant]
     Active Substance: FERROUS FUMARATE
     Indication: Product used for unknown indication
     Dosage: 300 MILLIGRAM, ONCE A DAY ( 1 EVERY 1 DAYS)
     Route: 065
  55. FLUOXETINE [Concomitant]
     Active Substance: FLUOXETINE HYDROCHLORIDE
     Indication: Product used for unknown indication
     Dosage: 20 MILLIGRAM, ONCE A DAY ( 1 EVERY 1 DAYS)
  56. GABAPENTIN [Concomitant]
     Active Substance: GABAPENTIN
     Indication: Product used for unknown indication
     Dosage: 100 MILLIGRAM, ONCE A DAY ( 2 EVERY 1 DAYS)
  57. HYALURONATE SODIUM [Concomitant]
     Active Substance: HYALURONATE SODIUM
     Indication: Product used for unknown indication
     Dosage: INTRA-NASAL
  58. MAGNESIUM [Concomitant]
     Active Substance: MAGNESIUM
     Indication: Arthritis
     Dosage: 250 MILLIGRAM
  59. MELATONIN [Concomitant]
     Active Substance: MELATONIN
     Indication: Product used for unknown indication
     Dosage: 3 MILLIGRAM
  60. MOMETASONE FUROATE [Concomitant]
     Active Substance: MOMETASONE FUROATE
     Indication: Product used for unknown indication
     Dosage: 400 MILLIGRAM
     Route: 065
  61. MOMETASONE FUROATE [Concomitant]
     Active Substance: MOMETASONE FUROATE
     Dosage: 400 MILLIGRAM
     Route: 065
  62. PRAMIPEXOLE DIHYDROCHLORIDE [Concomitant]
     Active Substance: PRAMIPEXOLE DIHYDROCHLORIDE
     Indication: Product used for unknown indication
     Dosage: 0.25 MILLIGRAM
     Route: 065
  63. PRAMIPEXOLE DIHYDROCHLORIDE [Concomitant]
     Active Substance: PRAMIPEXOLE DIHYDROCHLORIDE
     Dosage: 0.25 MILLIGRAM
  64. RABEPRAZOLE [Concomitant]
     Active Substance: RABEPRAZOLE
     Indication: Product used for unknown indication
     Dosage: 20 MILLIGRAM
  65. RAMIPRIL [Concomitant]
     Active Substance: RAMIPRIL
     Indication: Arthritis
     Dosage: 2.5 MILLIGRAM
  66. ROSUVASTATIN [Concomitant]
     Active Substance: ROSUVASTATIN
     Indication: Product used for unknown indication
     Dosage: 40 MILLIGRAM, ONCE A DAY (1 EVERY 1 DAYS)
  67. ROSUVASTATIN CALCIUM [Concomitant]
     Active Substance: ROSUVASTATIN CALCIUM
     Indication: Product used for unknown indication
     Dosage: 40 MILLIGRAM
  68. HERBALS\TURMERIC [Concomitant]
     Active Substance: HERBALS\TURMERIC
     Indication: Product used for unknown indication
     Route: 065

REACTIONS (65)
  - Abdominal discomfort [Not Recovered/Not Resolved]
  - Abdominal pain lower [Not Recovered/Not Resolved]
  - Abdominal pain upper [Not Recovered/Not Resolved]
  - Arthralgia [Not Recovered/Not Resolved]
  - Asthenia [Not Recovered/Not Resolved]
  - Back pain [Not Recovered/Not Resolved]
  - Balance disorder [Not Recovered/Not Resolved]
  - Blood pressure abnormal [Not Recovered/Not Resolved]
  - Blood pressure decreased [Not Recovered/Not Resolved]
  - Blood pressure fluctuation [Not Recovered/Not Resolved]
  - Blood pressure increased [Not Recovered/Not Resolved]
  - Blood urine present [Not Recovered/Not Resolved]
  - Body temperature decreased [Not Recovered/Not Resolved]
  - Brain fog [Not Recovered/Not Resolved]
  - Breast pain [Not Recovered/Not Resolved]
  - Chest pain [Not Recovered/Not Resolved]
  - Cough [Not Recovered/Not Resolved]
  - Dizziness [Not Recovered/Not Resolved]
  - Dizziness postural [Not Recovered/Not Resolved]
  - Dysarthria [Not Recovered/Not Resolved]
  - Dyspnoea [Not Recovered/Not Resolved]
  - Ear pain [Not Recovered/Not Resolved]
  - Fall [Not Recovered/Not Resolved]
  - Fatigue [Not Recovered/Not Resolved]
  - Feeling abnormal [Not Recovered/Not Resolved]
  - Feeling cold [Not Recovered/Not Resolved]
  - Feeling drunk [Not Recovered/Not Resolved]
  - Gait disturbance [Not Recovered/Not Resolved]
  - Head discomfort [Not Recovered/Not Resolved]
  - Headache [Not Recovered/Not Resolved]
  - Heart rate decreased [Not Recovered/Not Resolved]
  - Humidity intolerance [Not Recovered/Not Resolved]
  - Hypersomnia [Not Recovered/Not Resolved]
  - Hypoaesthesia [Not Recovered/Not Resolved]
  - Illness [Not Recovered/Not Resolved]
  - Inappropriate schedule of product administration [Not Recovered/Not Resolved]
  - Limb discomfort [Not Recovered/Not Resolved]
  - Lip swelling [Not Recovered/Not Resolved]
  - Loss of personal independence in daily activities [Not Recovered/Not Resolved]
  - Malaise [Not Recovered/Not Resolved]
  - Muscular weakness [Not Recovered/Not Resolved]
  - Nasopharyngitis [Not Recovered/Not Resolved]
  - Nephrolithiasis [Not Recovered/Not Resolved]
  - Pain in extremity [Not Recovered/Not Resolved]
  - Pain in jaw [Not Recovered/Not Resolved]
  - Paraesthesia [Not Recovered/Not Resolved]
  - Paraesthesia oral [Not Recovered/Not Resolved]
  - Pneumonia [Not Recovered/Not Resolved]
  - Poor venous access [Not Recovered/Not Resolved]
  - Procedural pain [Not Recovered/Not Resolved]
  - Pulse abnormal [Not Recovered/Not Resolved]
  - Restlessness [Not Recovered/Not Resolved]
  - Sinusitis [Not Recovered/Not Resolved]
  - Somnolence [Not Recovered/Not Resolved]
  - Stress [Not Recovered/Not Resolved]
  - Throat irritation [Not Recovered/Not Resolved]
  - Tooth fracture [Not Recovered/Not Resolved]
  - Tooth infection [Not Recovered/Not Resolved]
  - Toothache [Not Recovered/Not Resolved]
  - Transient ischaemic attack [Not Recovered/Not Resolved]
  - Vomiting [Not Recovered/Not Resolved]
  - Walking aid user [Not Recovered/Not Resolved]
  - Weight increased [Not Recovered/Not Resolved]
  - Hypersensitivity [Not Recovered/Not Resolved]
  - Therapeutic product effect delayed [Not Recovered/Not Resolved]
